FAERS Safety Report 4386867-4 (Version None)
Quarter: 2004Q2

REPORT INFORMATION
  Report Type: 
  Country: None (occurrence: None)
  Receive Date: 20040629
  Receipt Date: 20040614
  Transmission Date: 20050107
  Serious: Yes (Death)
  Sender: FDA-Public Use
  Company Number: 2004S1001746

PATIENT
  Age: 25 Year
  Sex: Male

DRUGS (8)
  1. CLOZAPINE [Suspect]
     Indication: SCHIZOPHRENIA
     Dosage: 150 MG QD ORAL
     Route: 048
     Dates: start: 20040527, end: 20040608
  2. DIPHENHYDRAMINE [Concomitant]
  3. AMLODIPINE [Concomitant]
  4. LANSOPRAZOLE [Concomitant]
  5. POTASSIUM [Concomitant]
  6. ATENOLOL [Concomitant]
  7. HALOOPERIDOL DECANOATE [Concomitant]
  8. LEVOFLOXACIN [Concomitant]

REACTIONS (1)
  - NEUROLEPTIC MALIGNANT SYNDROME [None]
